FAERS Safety Report 7211062-0 (Version None)
Quarter: 2011Q1

REPORT INFORMATION
  Report Type: 
  Country: None (occurrence: None)
  Receive Date: 20110105
  Receipt Date: 20110103
  Transmission Date: 20110831
  Serious: Yes (Hospitalization)
  Sender: FDA-Public Use
  Company Number: FI-BAYER-201045830GPV

PATIENT
  Sex: Female

DRUGS (5)
  1. NEXAVAR [Suspect]
     Dosage: DOSE WAS INCREASED
     Dates: start: 20100501
  2. SPIRESIS [Concomitant]
     Indication: ASCITES
     Dosage: 100 MG TABLET
     Dates: start: 20100928
  3. OXYCODONE HCL [Concomitant]
     Indication: PAIN
     Dosage: 5 MG (DAILY DOSE), QD,
     Dates: start: 20101021
  4. NEXAVAR [Suspect]
     Indication: HEPATIC NEOPLASM MALIGNANT
     Dates: start: 20100401
  5. HYDREX SEMI [Concomitant]
     Indication: ASCITES
     Dosage: 25 MG (DAILY DOSE), QD,
     Dates: start: 20101015

REACTIONS (4)
  - VISUAL IMPAIRMENT [None]
  - VISUAL ACUITY REDUCED [None]
  - HYPOACUSIS [None]
  - ABNORMAL SENSATION IN EYE [None]
